FAERS Safety Report 5745293-3 (Version None)
Quarter: 2008Q2

REPORT INFORMATION
  Report Type: 
  Country: None (occurrence: None)
  Receive Date: 20080520
  Receipt Date: 20080514
  Transmission Date: 20081010
  Serious: Yes (Other)
  Sender: FDA-Public Use
  Company Number: APP200800383

PATIENT
  Age: 67 Year
  Sex: Female
  Weight: 106 kg

DRUGS (8)
  1. HEPARIN SODIUM [Suspect]
     Indication: AORTIC VALVE REPLACEMENT
     Dosage: SEE IMAGE
     Route: 042
     Dates: start: 20080408, end: 20080408
  2. HEPARIN SODIUM [Suspect]
     Indication: CORONARY ARTERY BYPASS
     Dosage: SEE IMAGE
     Route: 042
     Dates: start: 20080408, end: 20080408
  3. HEPARIN SODIUM [Suspect]
     Indication: AORTIC VALVE REPLACEMENT
     Dosage: SEE IMAGE
     Route: 042
     Dates: start: 20080408, end: 20080408
  4. HEPARIN SODIUM [Suspect]
     Indication: CORONARY ARTERY BYPASS
     Dosage: SEE IMAGE
     Route: 042
     Dates: start: 20080408, end: 20080408
  5. HEPARIN SODIUM [Suspect]
     Indication: AORTIC VALVE REPLACEMENT
     Dosage: SEE IMAGE
     Route: 042
     Dates: start: 20080408, end: 20080408
  6. HEPARIN SODIUM [Suspect]
     Indication: CORONARY ARTERY BYPASS
     Dosage: SEE IMAGE
     Route: 042
     Dates: start: 20080408, end: 20080408
  7. HEPARIN SODIUM [Suspect]
  8. DESMOPRESSIN ACETATE [Concomitant]

REACTIONS (1)
  - DRUG EFFECT DECREASED [None]
